FAERS Safety Report 10549864 (Version 1)
Quarter: 2014Q4

REPORT INFORMATION
  Report Type: Spontaneous
  Country: US (occurrence: US)
  Receive Date: 20141028
  Receipt Date: 20141028
  Transmission Date: 20150529
  Serious: No
  Sender: FDA-Public Use
  Company Number: US-TARO-2014TAR00250

PATIENT
  Sex: Male
  Weight: 81.63 kg

DRUGS (6)
  1. PHENYTOIN SODIUM EXTENDED [Suspect]
     Active Substance: PHENYTOIN SODIUM
     Indication: EPILEPSY
     Dosage: 200 MG, 2X/DAY
     Route: 048
     Dates: start: 2013
  2. UNSPECIFIED OVER THE COUNTER MEDICATIONS [Concomitant]
  3. VIMPAT [Concomitant]
     Active Substance: LACOSAMIDE
     Dosage: 200 MG, 1X/DAY
  4. KEPPRA [Concomitant]
     Active Substance: LEVETIRACETAM
     Dosage: 3000 MG, 1X/DAY
  5. TYLENOL [Concomitant]
     Active Substance: ACETAMINOPHEN
  6. NAPROSYN [Concomitant]
     Active Substance: NAPROXEN

REACTIONS (2)
  - Feeling of relaxation [Recovered/Resolved]
  - Product substitution issue [Recovered/Resolved]

NARRATIVE: CASE EVENT DATE: 2013
